FAERS Safety Report 7618309-7 (Version None)
Quarter: 2011Q3

REPORT INFORMATION
  Report Type: 
  Country: None (occurrence: None)
  Receive Date: 20110718
  Receipt Date: 20110705
  Transmission Date: 20111222
  Serious: Yes (Hospitalization)
  Sender: FDA-Public Use
  Company Number: BE-ROCHE-785228

PATIENT

DRUGS (3)
  1. TELAPREVIR [Suspect]
     Route: 065
  2. PEGINTERFERON ALFA-2A [Suspect]
     Route: 065
  3. RIBAVIRIN [Suspect]
     Route: 065

REACTIONS (4)
  - ELECTROCARDIOGRAM T WAVE INVERSION [None]
  - PULMONARY HYPERTENSION [None]
  - DYSPNOEA EXERTIONAL [None]
  - SYNCOPE [None]
